FAERS Safety Report 7603958-2 (Version None)
Quarter: 2011Q3

REPORT INFORMATION
  Report Type: 
  Country: None (occurrence: None)
  Receive Date: 20110712
  Receipt Date: 20110701
  Transmission Date: 20111222
  Serious: Yes (Hospitalization)
  Sender: FDA-Public Use
  Company Number: US-ROCHE-787716

PATIENT
  Age: 62 Year
  Sex: Female
  Weight: 80.9 kg

DRUGS (5)
  1. PACLITAXEL [Suspect]
     Dosage: WEEKLY.
     Route: 042
  2. BEVACIZUMAB [Suspect]
     Indication: OVARIAN EPITHELIAL CANCER
     Dosage: LAST DOSE PRIOR TO SAE ON 22 MARCH 2011.
     Route: 042
     Dates: start: 20110125
  3. CARBOPLATIN [Suspect]
     Dosage: EVERY 21 DAYS. REGIMEN 1.
     Route: 042
  4. PACLITAXEL [Suspect]
     Indication: OVARIAN EPITHELIAL CANCER
     Dosage: LAST DOSE PRIOR TO SAE ON 29 MARCH 2011.
     Route: 042
     Dates: start: 20110125
  5. CARBOPLATIN [Suspect]
     Indication: OVARIAN EPITHELIAL CANCER
     Dosage: LAST DOSE PRIOR TO SAE ON 22 MARCH 2011.
     Route: 042
     Dates: start: 20110125

REACTIONS (5)
  - DECREASED APPETITE [None]
  - ILEAL FISTULA [None]
  - TACHYPNOEA [None]
  - SINUS TACHYCARDIA [None]
  - DYSPNOEA [None]
